FAERS Safety Report 15683088 (Version 1)
Quarter: 2018Q4

REPORT INFORMATION
  Report Type: Spontaneous
  Country: DE (occurrence: DE)
  Receive Date: 20181204
  Receipt Date: 20181204
  Transmission Date: 20190205
  Serious: Yes (Hospitalization)
  Sender: FDA-Public Use
  Company Number: DE-B.I. PHARMACEUTICALS,INC./RIDGEFIELD-2018-BI-057488

PATIENT
  Age: 75 Year
  Sex: Female
  Weight: 46 kg

DRUGS (5)
  1. SPIRIVA [Suspect]
     Active Substance: TIOTROPIUM BROMIDE MONOHYDRATE
     Indication: EMPHYSEMA
  2. SPIRIVA RESPIMAT [Suspect]
     Active Substance: TIOTROPIUM BROMIDE
     Indication: CHRONIC OBSTRUCTIVE PULMONARY DISEASE
     Route: 065
     Dates: start: 201811
  3. SPIRIVA RESPIMAT [Suspect]
     Active Substance: TIOTROPIUM BROMIDE
     Indication: EMPHYSEMA
  4. RELVAR [Concomitant]
     Active Substance: FLUTICASONE FUROATE\VILANTEROL TRIFENATATE
     Indication: PRODUCT USED FOR UNKNOWN INDICATION
     Route: 065
  5. SPIRIVA [Suspect]
     Active Substance: TIOTROPIUM BROMIDE MONOHYDRATE
     Indication: CHRONIC OBSTRUCTIVE PULMONARY DISEASE
     Route: 065
     Dates: start: 201611, end: 201809

REACTIONS (5)
  - Cough [Recovered/Resolved]
  - Dizziness [Not Recovered/Not Resolved]
  - Renal aneurysm [Recovered/Resolved]
  - Atheroembolism [Recovered/Resolved]
  - Renal failure [Recovered/Resolved]

NARRATIVE: CASE EVENT DATE: 201611
